FAERS Safety Report 4783413-8 (Version None)
Quarter: 2005Q3

REPORT INFORMATION
  Report Type: 
  Country: None (occurrence: None)
  Receive Date: 20050928
  Receipt Date: 20050912
  Transmission Date: 20060218
  Serious: Yes (Death)
  Sender: FDA-Public Use
  Company Number: US_0504116553

PATIENT
  Sex: Female

DRUGS (9)
  1. ZYPREXA [Suspect]
     Indication: SCHIZOPHRENIA
     Dosage: 10 MG
     Dates: start: 20000505
  2. THIOTHIXENE [Concomitant]
  3. ZOCOR [Concomitant]
  4. DIOVAN [Concomitant]
  5. ZETIA [Concomitant]
  6. DESIPRAMINE HCL [Concomitant]
  7. VYTORIN [Concomitant]
  8. BENICAR HCT [Concomitant]
  9. ACETYLSALICYLIC ACID SRT [Concomitant]

REACTIONS (5)
  - BLOOD PRESSURE ABNORMAL [None]
  - BLOOD UREA INCREASED [None]
  - DIABETES MELLITUS [None]
  - GLYCOSYLATED HAEMOGLOBIN INCREASED [None]
  - HIGH DENSITY LIPOPROTEIN DECREASED [None]
